FAERS Safety Report 9396024 (Version 1)
Quarter: 2013Q3

REPORT INFORMATION
  Report Type: Spontaneous
  Country: US (occurrence: US)
  Receive Date: 20130711
  Receipt Date: 20130711
  Transmission Date: 20140515
  Serious: Yes (Other)
  Sender: FDA-Public Use
  Company Number: US-TEVA-418132USA

PATIENT
  Age: 13 Year
  Sex: Female

DRUGS (5)
  1. DAUNORUBICIN [Suspect]
     Indication: ACUTE LYMPHOCYTIC LEUKAEMIA
     Route: 065
  2. VINCRISTINE [Suspect]
     Indication: ACUTE LYMPHOCYTIC LEUKAEMIA
     Route: 065
  3. METHOTREXATE [Suspect]
     Route: 037
  4. PEGASPARGASE [Suspect]
     Indication: ACUTE LYMPHOCYTIC LEUKAEMIA
     Dosage: 1 DOSE
     Route: 065
  5. PREDNISONE [Suspect]
     Indication: ACUTE LYMPHOCYTIC LEUKAEMIA
     Route: 065

REACTIONS (2)
  - Intracranial venous sinus thrombosis [Recovered/Resolved]
  - Neurotoxicity [Unknown]
